FAERS Safety Report 19858763 (Version 1)
Quarter: 2021Q3

REPORT INFORMATION
  Report Type: Report from Study
  Country: US (occurrence: US)
  Receive Date: 20210921
  Receipt Date: 20210921
  Transmission Date: 20211014
  Serious: No
  Sender: FDA-Public Use
  Company Number: US-IPSEN BIOPHARMACEUTICALS, INC.-2021-22379

PATIENT
  Sex: Male

DRUGS (1)
  1. SOMATULINE DEPOT [Suspect]
     Active Substance: LANREOTIDE ACETATE
     Indication: SMALL INTESTINE CARCINOMA
     Route: 058
     Dates: start: 2020

REACTIONS (2)
  - Nausea [Recovering/Resolving]
  - Diarrhoea [Recovering/Resolving]
